FAERS Safety Report 15861311 (Version 2)
Quarter: 2019Q2

REPORT INFORMATION
  Report Type: Report from Study
  Country: CA (occurrence: CA)
  Receive Date: 20190124
  Receipt Date: 20190619
  Transmission Date: 20190711
  Serious: Yes (Hospitalization)
  Sender: FDA-Public Use
  Company Number: CA-TOLMAR, INC.-2019CA000690

PATIENT

DRUGS (1)
  1. ELIGARD [Suspect]
     Active Substance: LEUPROLIDE ACETATE
     Indication: PROSTATE CANCER
     Dosage: 22.5 MG, Q3MONTHS
     Route: 058
     Dates: start: 20170901

REACTIONS (7)
  - Rectal ulcer haemorrhage [Recovering/Resolving]
  - Asthenia [Recovering/Resolving]
  - Prostatic specific antigen increased [Recovering/Resolving]
  - Rectal abscess [Recovering/Resolving]
  - Anaemia [Recovering/Resolving]
  - Iron deficiency [Recovering/Resolving]
  - Fatigue [Recovering/Resolving]

NARRATIVE: CASE EVENT DATE: 201812
